FAERS Safety Report 17668279 (Version 2)
Quarter: 2020Q2

REPORT INFORMATION
  Report Type: Spontaneous
  Country: PT (occurrence: PT)
  Receive Date: 20200415
  Receipt Date: 20200519
  Transmission Date: 20200713
  Serious: Yes (Hospitalization, Other)
  Sender: FDA-Public Use
  Company Number: PT-VISTAPHARM, INC.-VER202004-000778

PATIENT
  Age: 3 Year
  Sex: Male

DRUGS (1)
  1. METHADONE [Suspect]
     Active Substance: METHADONE HYDROCHLORIDE
     Indication: PRODUCT USED FOR UNKNOWN INDICATION
     Dosage: UNKNOWN

REACTIONS (6)
  - Brain oedema [Fatal]
  - Brain oedema [Unknown]
  - Cerebral ischaemia [Fatal]
  - Encephalitis [Fatal]
  - Coma [Fatal]
  - Accidental exposure to product [Unknown]
